FAERS Safety Report 21899783 (Version 1)
Quarter: 2023Q1

REPORT INFORMATION
  Report Type: Spontaneous
  Country: GB (occurrence: GB)
  Receive Date: 20230123
  Receipt Date: 20230123
  Transmission Date: 20230417
  Serious: Yes (Other)
  Sender: FDA-Public Use
  Company Number: GB-MHRA-MED-202301121532480820-CWSFP

PATIENT
  Age: 70 Year
  Sex: Male
  Weight: 64 kg

DRUGS (3)
  1. STIVARGA [Suspect]
     Active Substance: REGORAFENIB
     Indication: Adverse drug reaction
     Dosage: 120 MG, QD FOR 3 WEEKS
     Route: 048
     Dates: start: 20220514
  2. STIVARGA [Suspect]
     Active Substance: REGORAFENIB
     Indication: Gastrointestinal stromal tumour
  3. TAMSULOSIN [Concomitant]
     Active Substance: TAMSULOSIN
     Indication: Benign prostatic hyperplasia
     Dosage: UNK

REACTIONS (3)
  - Urinary retention [Not Recovered/Not Resolved]
  - Dysuria [None]
  - Off label use [None]

NARRATIVE: CASE EVENT DATE: 20220514
